FAERS Safety Report 8190647-1 (Version None)
Quarter: 2012Q1

REPORT INFORMATION
  Report Type: 
  Country: None (occurrence: None)
  Receive Date: 20120307
  Receipt Date: 20120222
  Transmission Date: 20120608
  Serious: Yes (Other)
  Sender: FDA-Public Use
  Company Number: CA-ROCHE-1042665

PATIENT
  Age: 64 Year
  Sex: Female

DRUGS (5)
  1. LOSEC (CANADA) [Concomitant]
  2. HERCEPTIN [Suspect]
     Indication: BREAST CANCER
  3. PREDNISONE TAB [Concomitant]
  4. ABRAXANE [Suspect]
     Indication: BREAST CANCER
  5. PERINDOPRIL ERBUMINE [Suspect]
     Indication: PRODUCT USED FOR UNKNOWN INDICATION
     Dates: start: 20111026

REACTIONS (2)
  - IDIOPATHIC THROMBOCYTOPENIC PURPURA [None]
  - EJECTION FRACTION DECREASED [None]
